FAERS Safety Report 21198780 (Version 1)
Quarter: 2022Q3

REPORT INFORMATION
  Report Type: Spontaneous
  Country: GB (occurrence: None)
  Receive Date: 20220811
  Receipt Date: 20220811
  Transmission Date: 20221027
  Serious: Yes (Other)
  Sender: FDA-Public Use
  Company Number: None

PATIENT
  Age: 72 Year
  Sex: Male
  Weight: 106 kg

DRUGS (9)
  1. STALEVO [Suspect]
     Active Substance: CARBIDOPA\ENTACAPONE\LEVODOPA
     Indication: Product used for unknown indication
     Dosage: 200MG/50MG/200MG ?TAKE ONE AT 8.30 AM  INSTEAD OF 2 CAPSULES OF M...
     Route: 065
     Dates: start: 20220408
  2. CODEINE PHOSPHATE [Concomitant]
     Active Substance: CODEINE PHOSPHATE
     Indication: Back pain
     Dosage: PRN
     Route: 065
     Dates: start: 20220705, end: 20220725
  3. GLICLAZIDE [Concomitant]
     Active Substance: GLICLAZIDE
     Dosage: TAKE ONE WITH BREAKFAST ONE WITH LUNCH AND TWO ...
     Route: 065
     Dates: start: 20210112
  4. HYDROXOCOBALAMIN [Concomitant]
     Active Substance: HYDROXOCOBALAMIN
     Route: 030
     Dates: start: 20210112
  5. BENSERAZIDE HYDROCHLORIDE\LEVODOPA [Concomitant]
     Active Substance: BENSERAZIDE HYDROCHLORIDE\LEVODOPA
     Dosage: AT 8.30AM 11.30AM,...
     Route: 065
     Dates: start: 20210112
  6. METFORMIN [Concomitant]
     Active Substance: METFORMIN HYDROCHLORIDE
     Dosage: WITH MEALS
     Route: 065
     Dates: start: 20210112
  7. ACETAMINOPHEN [Concomitant]
     Active Substance: ACETAMINOPHEN
     Indication: Pain
     Dosage: UP TO 4 TIMES A DAY WHEN REQUIRED
     Route: 065
     Dates: start: 20210526
  8. PIROXICAM [Concomitant]
     Active Substance: PIROXICAM
     Dosage: UP TO 2  TIMES A DAY TO AFFECTED AREA AS ...
     Route: 065
     Dates: start: 20220601, end: 20220629
  9. RASAGILINE [Concomitant]
     Active Substance: RASAGILINE
     Route: 065
     Dates: start: 20210112

REACTIONS (8)
  - Muscular weakness [Unknown]
  - Confusional state [Unknown]
  - Impulsive behaviour [Unknown]
  - Salivary hypersecretion [Unknown]
  - Compulsive sexual behaviour [Unknown]
  - Paranoia [Unknown]
  - Myalgia [Unknown]
  - Gambling disorder [Unknown]

NARRATIVE: CASE EVENT DATE: 20220804
